FAERS Safety Report 7728614-1 (Version None)
Quarter: 2011Q3

REPORT INFORMATION
  Report Type: 
  Country: None (occurrence: None)
  Receive Date: 20110831
  Receipt Date: 20110831
  Transmission Date: 20111222
  Serious: Yes (Hospitalization)
  Sender: FDA-Public Use
  Company Number: None

PATIENT
  Sex: Male

DRUGS (1)
  1. LENALIDOMIDE [Suspect]
     Indication: NEOPLASM MALIGNANT
     Dosage: LENALIDOMIDE 28 MG DAILY FOR 21 DAYS ORAL/PO
     Route: 048
     Dates: start: 20090622, end: 20091111

REACTIONS (1)
  - CHEST DISCOMFORT [None]
